FAERS Safety Report 12954876 (Version 1)
Quarter: 2016Q4

REPORT INFORMATION
  Report Type: Report from Study
  Country: BR (occurrence: BR)
  Receive Date: 20161118
  Receipt Date: 20161118
  Transmission Date: 20170207
  Serious: Yes (Hospitalization)
  Sender: FDA-Public Use
  Company Number: PHHY2016BR158295

PATIENT
  Sex: Male
  Weight: 62 kg

DRUGS (4)
  1. ATORVASTATIN [Concomitant]
     Active Substance: ATORVASTATIN
     Indication: BLOOD CHOLESTEROL ABNORMAL
     Dosage: 40 MG, QD
     Route: 048
  2. BRILINTA [Concomitant]
     Active Substance: TICAGRELOR
     Indication: MYOCARDIAL INFARCTION
     Dosage: 90 MG, BID (EVERY 12 HOURS)
     Route: 048
  3. ATORVASTATIN [Concomitant]
     Active Substance: ATORVASTATIN
     Indication: MYOCARDIAL INFARCTION
  4. SEEBRI BREEZHALER [Suspect]
     Active Substance: GLYCOPYRROLATE
     Indication: LUNG DISORDER
     Dosage: 50 UG, QD
     Route: 055

REACTIONS (4)
  - Product use issue [Unknown]
  - Myocardial infarction [Unknown]
  - Fatigue [Unknown]
  - Exercise tolerance decreased [Unknown]
